FAERS Safety Report 4784916-2 (Version None)
Quarter: 2005Q3

REPORT INFORMATION
  Report Type: 
  Country: None (occurrence: None)
  Receive Date: 20050928
  Receipt Date: 20050915
  Transmission Date: 20060218
  Serious: Yes (Disabling, Other)
  Sender: FDA-Public Use
  Company Number: 2005125883

PATIENT
  Sex: Female
  Weight: 56.6996 kg

DRUGS (7)
  1. DIFLUCAN [Suspect]
     Indication: FUNGAL INFECTION
     Dosage: 150 MG (150 MG, ONCE), ORAL
     Route: 048
  2. XANAX [Suspect]
     Indication: BACK PAIN
     Dosage: 0.75 MG (0.25 MG, 3 IN 1 D), ORAL
     Route: 048
  3. ZITHROMAX [Suspect]
     Indication: LOWER RESPIRATORY TRACT INFECTION
  4. PREMARIN [Concomitant]
  5. IMITREX (SUMARTRIPTAN SUCCINATE) [Concomitant]
  6. ALL OTHER THERAPEUTIC PRODUCTS (ALL OTHER THERAPEUTIC PRODUCTS) [Concomitant]
  7. TOPROL-XL [Concomitant]

REACTIONS (16)
  - ANXIETY [None]
  - BIPOLAR DISORDER [None]
  - BRONCHITIS [None]
  - DRUG INEFFECTIVE [None]
  - ECONOMIC PROBLEM [None]
  - FIBROMYALGIA [None]
  - IMPAIRED WORK ABILITY [None]
  - INFECTION [None]
  - MALAISE [None]
  - PANIC REACTION [None]
  - PRECANCEROUS CELLS PRESENT [None]
  - STRESS [None]
  - SYSTEMIC LUPUS ERYTHEMATOSUS [None]
  - UTERINE DISORDER [None]
  - WEIGHT DECREASED [None]
  - WEIGHT INCREASED [None]
